FAERS Safety Report 7150507-1 (Version None)
Quarter: 2010Q4

REPORT INFORMATION
  Report Type: 
  Country: None (occurrence: None)
  Receive Date: 20101210
  Receipt Date: 20101208
  Transmission Date: 20110411
  Serious: Yes (Other)
  Sender: FDA-Public Use
  Company Number: MY-PFIZER INC-2010167612

PATIENT
  Age: 60 Year
  Sex: Male

DRUGS (3)
  1. MINIPRESS [Suspect]
     Indication: HYPERTENSION
     Dosage: 15 MG, 1X/DAY
     Route: 048
  2. PLENDIL [Suspect]
     Indication: HYPERTENSION
     Dosage: 20 MG, 1X/DAY
     Route: 048
  3. DIOVAN [Suspect]
     Indication: HYPERTENSION
     Dosage: 320 MG, 1X/DAY
     Route: 048

REACTIONS (2)
  - HEPATIC ENZYME INCREASED [None]
  - JAUNDICE [None]
